FAERS Safety Report 17501959 (Version 1)
Quarter: 2020Q1

REPORT INFORMATION
  Report Type: Spontaneous
  Country: US (occurrence: US)
  Receive Date: 20200305
  Receipt Date: 20200305
  Transmission Date: 20200409
  Serious: No
  Sender: FDA-Public Use
  Company Number: None

PATIENT
  Age: 8 Year
  Sex: Female
  Weight: 23.4 kg

DRUGS (2)
  1. GUANFACINE ER [Suspect]
     Active Substance: GUANFACINE
     Indication: ATTENTION DEFICIT/HYPERACTIVITY DISORDER
     Dosage: ?          QUANTITY:90 TABLET(S);?
     Route: 048
  2. FOCALIN SR 10 MG [Concomitant]

REACTIONS (4)
  - Product substitution issue [None]
  - Insomnia [None]
  - Mood altered [None]
  - Therapeutic response decreased [None]

NARRATIVE: CASE EVENT DATE: 20200301
